FAERS Safety Report 10704664 (Version 1)
Quarter: 2015Q1

REPORT INFORMATION
  Report Type: Spontaneous
  Country: US (occurrence: None)
  Receive Date: 20150109
  Receipt Date: 20150109
  Transmission Date: 20150721
  Serious: Yes (Life-Threatening)
  Sender: FDA-Public Use
  Company Number: None

PATIENT
  Age: 42 Year
  Sex: Female
  Weight: 59.5 kg

DRUGS (1)
  1. HUMALOG KWIKPEN [Suspect]
     Active Substance: INSULIN LISPRO
     Indication: TYPE 1 DIABETES MELLITUS
     Dosage: TOTAL DAILY DOSE 20 UNITS, PRN, SUBCUTANEOUS
     Route: 058

REACTIONS (4)
  - Device defective [None]
  - Withdrawal syndrome [None]
  - Diabetic ketoacidosis [None]
  - Drug dose omission [None]

NARRATIVE: CASE EVENT DATE: 20141231
